FAERS Safety Report 11149147 (Version 1)
Quarter: 2015Q2

REPORT INFORMATION
  Report Type: Spontaneous
  Country: SG (occurrence: SG)
  Receive Date: 20150529
  Receipt Date: 20150529
  Transmission Date: 20150821
  Serious: Yes (Other)
  Sender: FDA-Public Use
  Company Number: SG-GLAXOSMITHKLINE-SG2015GSK073600

PATIENT
  Age: 41 Year
  Sex: Female

DRUGS (4)
  1. FENTANYL. [Concomitant]
     Active Substance: FENTANYL
  2. ONDANSETRON [Suspect]
     Active Substance: ONDANSETRON
     Indication: PROPHYLAXIS OF NAUSEA AND VOMITING
     Dosage: 4 MG, SINGLE
     Route: 042
  3. PROPOFOL. [Concomitant]
     Active Substance: PROPOFOL
  4. SEVOFLURANE. [Concomitant]
     Active Substance: SEVOFLURANE

REACTIONS (7)
  - Oculogyric crisis [Unknown]
  - Clonus [Unknown]
  - Eye movement disorder [Unknown]
  - Movement disorder [Unknown]
  - Blindness [Unknown]
  - Emotional distress [Unknown]
  - Dystonia [Unknown]
